FAERS Safety Report 4910659-8 (Version None)
Quarter: 2006Q1

REPORT INFORMATION
  Report Type: 
  Country: None (occurrence: None)
  Receive Date: 20060214
  Receipt Date: 20051202
  Transmission Date: 20060701
  Serious: Yes (Hospitalization)
  Sender: FDA-Public Use
  Company Number: HU-BRISTOL-MYERS SQUIBB COMPANY-13202965

PATIENT
  Age: 63 Year
  Sex: Male

DRUGS (6)
  1. CISPLATIN [Suspect]
     Indication: GASTRIC CANCER
     Dosage: START DATE FOR CYCLES 1-3: 08AUG05
     Route: 041
     Dates: start: 20051102, end: 20051102
  2. FLUOROURACIL [Suspect]
     Indication: GASTRIC CANCER
     Dosage: START DATE FOR CYCLES 1-3: 08AUG05
     Route: 041
     Dates: start: 20051102, end: 20051108
  3. AMLODIPINE [Concomitant]
     Indication: HYPERTENSION
     Route: 048
  4. CONCOR [Concomitant]
     Indication: HYPERTENSION
     Route: 048
  5. MONOPRIL [Concomitant]
     Indication: HYPERTENSION
     Route: 048
  6. NITROMINT [Concomitant]
     Indication: MYOCARDIAL ISCHAEMIA
     Route: 048

REACTIONS (1)
  - ANGINA PECTORIS [None]
